FAERS Safety Report 24881892 (Version 1)
Quarter: 2025Q1

REPORT INFORMATION
  Report Type: Spontaneous
  Country: US (occurrence: US)
  Receive Date: 20250124
  Receipt Date: 20250124
  Transmission Date: 20250408
  Serious: No
  Sender: ELI LILLY AND COMPANY
  Company Number: US-ELI_LILLY_AND_COMPANY-US202501016074

PATIENT
  Age: 70 Year

DRUGS (1)
  1. FORTEO [Suspect]
     Active Substance: TERIPARATIDE
     Indication: Product used for unknown indication
     Dosage: 20 UG, DAILY
     Route: 058

REACTIONS (5)
  - Osteoporosis [Unknown]
  - Osteoarthritis [Unknown]
  - Autoimmune disorder [Unknown]
  - Pain in extremity [Unknown]
  - Arthralgia [Unknown]
